FAERS Safety Report 9392983 (Version 2)
Quarter: 2013Q3

REPORT INFORMATION
  Report Type: Spontaneous
  Country: JP (occurrence: JP)
  Receive Date: 20130710
  Receipt Date: 20130719
  Transmission Date: 20140515
  Serious: Yes (Other)
  Sender: FDA-Public Use
  Company Number: JP-NOVOPROD-381984

PATIENT
  Age: 44 Year
  Sex: Male
  Weight: 99 kg

DRUGS (6)
  1. VICTOZA HIKACHU INJECTION [Suspect]
     Indication: TYPE 2 DIABETES MELLITUS
     Dosage: 0.3 MG, QD
     Route: 058
     Dates: start: 20130308
  2. VICTOZA HIKACHU INJECTION [Suspect]
     Dosage: 0.6 MG, QD
     Route: 058
     Dates: start: 20130311
  3. VICTOZA HIKACHU INJECTION [Suspect]
     Dosage: 0.9 MG, QD
     Route: 058
     Dates: start: 20130314
  4. VICTOZA HIKACHU INJECTION [Suspect]
     Dosage: 0.6 MG, QD
     Route: 058
     Dates: start: 20130613
  5. METGLUCO [Concomitant]
     Dosage: UNK
     Route: 048
     Dates: start: 20130304
  6. CLARITH [Concomitant]
     Dosage: UNK
     Route: 048
     Dates: start: 20130304, end: 20130311

REACTIONS (3)
  - Ventricular extrasystoles [Unknown]
  - Atrioventricular block [Unknown]
  - Dermatitis [Recovering/Resolving]
